FAERS Safety Report 11004872 (Version 1)
Quarter: 2015Q2

REPORT INFORMATION
  Report Type: Report from Study
  Country: CZ (occurrence: CZ)
  Receive Date: 20150409
  Receipt Date: 20150409
  Transmission Date: 20150821
  Serious: Yes (Death, Other)
  Sender: FDA-Public Use
  Company Number: PHHY2015CZ041241

PATIENT
  Age: 70 Year
  Sex: Female

DRUGS (2)
  1. AMN107 [Suspect]
     Active Substance: NILOTINIB
     Route: 065
     Dates: start: 20140307, end: 20140519
  2. AMN107 [Suspect]
     Active Substance: NILOTINIB
     Indication: CHRONIC MYELOID LEUKAEMIA
     Route: 065
     Dates: start: 20101027, end: 20120704

REACTIONS (2)
  - Blast crisis in myelogenous leukaemia [Fatal]
  - Urosepsis [Unknown]

NARRATIVE: CASE EVENT DATE: 20150104
